FAERS Safety Report 9569247 (Version 1)
Quarter: 2013Q3

REPORT INFORMATION
  Report Type: Spontaneous
  Country: US (occurrence: US)
  Receive Date: 20130930
  Receipt Date: 20130930
  Transmission Date: 20140515
  Serious: No
  Sender: FDA-Public Use
  Company Number: US-AMGEN-USASP2013058615

PATIENT
  Age: 43 Year
  Sex: Female
  Weight: 83.9 kg

DRUGS (10)
  1. ENBREL [Suspect]
     Indication: PRODUCT USED FOR UNKNOWN INDICATION
     Dosage: 50 MG, QWK
     Route: 058
  2. XANAX [Concomitant]
     Dosage: 1 MG, UNK
  3. METHOTREXATE [Concomitant]
     Dosage: 2.5 MG, UNK
  4. LEXAPRO [Concomitant]
     Dosage: 5 MG, UNK
  5. POTASSIUM [Concomitant]
     Dosage: 75 MG, UNK
  6. BACTRIM [Concomitant]
     Dosage: 400-80 MG, UNK
  7. MAGNESIUM [Concomitant]
     Dosage: 400 MG, UNK
  8. B COMPLEX                          /06817001/ [Concomitant]
     Dosage: UNK
  9. FOLIC ACID [Concomitant]
     Dosage: UNK
  10. PERCOCET                           /00867901/ [Concomitant]
     Dosage: UNK, 2.5-325

REACTIONS (4)
  - Burning sensation [Unknown]
  - Local swelling [Unknown]
  - Pain in extremity [Unknown]
  - Localised infection [Unknown]
